FAERS Safety Report 5977576-6 (Version None)
Quarter: 2008Q4

REPORT INFORMATION
  Report Type: 
  Country: None (occurrence: None)
  Receive Date: 20081201
  Receipt Date: 20081201
  Transmission Date: 20090506
  Serious: Yes (Other)
  Sender: FDA-Public Use
  Company Number: None

PATIENT
  Age: 34 Year
  Sex: Female
  Weight: 79.3795 kg

DRUGS (1)
  1. DOXYCYCLINE [Suspect]
     Indication: ACNE
     Dosage: 100MG 2XDAILY PO
     Route: 048
     Dates: start: 20080910, end: 20081129

REACTIONS (4)
  - BURN OESOPHAGEAL [None]
  - GASTROOESOPHAGEAL REFLUX DISEASE [None]
  - OESOPHAGEAL DISORDER [None]
  - SALIVARY HYPERSECRETION [None]
